FAERS Safety Report 14248730 (Version 1)
Quarter: 2017Q4

REPORT INFORMATION
  Report Type: Report from Study
  Country: US (occurrence: US)
  Receive Date: 20171204
  Receipt Date: 20171204
  Transmission Date: 20180321
  Serious: Yes (Death, Hospitalization)
  Sender: FDA-Public Use
  Company Number: US-PFIZER INC-2017516607

PATIENT
  Age: 63 Year
  Sex: Female
  Weight: 69 kg

DRUGS (4)
  1. RUXOLITINIB [Suspect]
     Active Substance: RUXOLITINIB
     Dosage: LNCB018424 TABLET, 10 MG, QD
     Route: 048
     Dates: start: 20170808, end: 20170921
  2. METHYLPREDNISOLONE SODIUM SUCCINATE. [Suspect]
     Active Substance: METHYLPREDNISOLONE SODIUM SUCCINATE
     Indication: GRAFT VERSUS HOST DISEASE
     Dosage: 20 MG, 2X/DAY
     Route: 042
     Dates: start: 20170802
  3. RUXOLITINIB [Suspect]
     Active Substance: RUXOLITINIB
     Indication: GRAFT VERSUS HOST DISEASE
     Dosage: LNCB018424 TABLET, 5 MG, QD
     Route: 048
     Dates: start: 20170805, end: 20170807
  4. METHYLPREDNISOLONE SODIUM SUCCINATE. [Suspect]
     Active Substance: METHYLPREDNISOLONE SODIUM SUCCINATE
     Dosage: 60 MG, 2X/DAY
     Route: 042
     Dates: start: 20170802, end: 20171004

REACTIONS (2)
  - Condition aggravated [Fatal]
  - Graft versus host disease [Fatal]

NARRATIVE: CASE EVENT DATE: 20170921
